FAERS Safety Report 17904214 (Version 1)
Quarter: 2020Q2

REPORT INFORMATION
  Report Type: Spontaneous
  Country: US (occurrence: US)
  Receive Date: 20200617
  Receipt Date: 20200617
  Transmission Date: 20200714
  Serious: No
  Sender: FDA-Public Use
  Company Number: US-AUROBINDO-AUR-APL-2020-003128

PATIENT
  Age: 2 Year
  Sex: Male
  Weight: 15.87 kg

DRUGS (1)
  1. CLINDAMYCIN PALMITATE HYDROCHLORIDE FOR ORAL SOLUTION USP(PEDIATRIC) [Suspect]
     Active Substance: CLINDAMYCIN PALMITATE HYDROCHLORIDE
     Indication: PRODUCT USED FOR UNKNOWN INDICATION
     Dosage: UNK
     Route: 065
     Dates: start: 20200104

REACTIONS (4)
  - Drug ineffective [Unknown]
  - Insomnia [Unknown]
  - Product taste abnormal [Unknown]
  - Infection [Unknown]

NARRATIVE: CASE EVENT DATE: 20200108
